FAERS Safety Report 7219958-0 (Version None)
Quarter: 2011Q1

REPORT INFORMATION
  Report Type: 
  Country: None (occurrence: None)
  Receive Date: 20110111
  Receipt Date: 20101228
  Transmission Date: 20110831
  Serious: No
  Sender: FDA-Public Use
  Company Number: US-B.I. PHARMACEUTICALS,INC./RIDGEFIELD-2011-BP-00333BP

PATIENT
  Age: 87 Year
  Sex: Male

DRUGS (8)
  1. HYDROCHLOROTHIAZIDE [Concomitant]
     Indication: HYPERTENSION
     Dosage: 25 MG
     Route: 048
  2. SIMVASTATIN [Concomitant]
     Indication: BLOOD CHOLESTEROL INCREASED
     Dosage: 20 MG
     Route: 048
  3. PAROXETINE HCL [Concomitant]
     Indication: DEPRESSION
     Dosage: 40 MG
     Route: 048
  4. MULTI-VITAMIN [Concomitant]
     Indication: SUPPLEMENTATION THERAPY
     Dosage: ONCE DAILY
     Route: 048
  5. LISINOPRIL [Concomitant]
     Indication: HYPERTENSION
     Dosage: 5 MG
     Route: 048
     Dates: start: 20050101
  6. OXYBUTIN [Concomitant]
     Indication: DYSURIA
     Route: 048
     Dates: start: 20090101
  7. CARBIDOPA AND LEVODOPA [Concomitant]
     Indication: TREMOR
     Dosage: 1 TABLET TID
     Route: 048
  8. PRADAXA [Suspect]
     Indication: ATRIAL FIBRILLATION
     Dosage: 300 MG
     Route: 048
     Dates: start: 20101222

REACTIONS (1)
  - MICTURITION DISORDER [None]
